FAERS Safety Report 24006457 (Version 2)
Quarter: 2024Q3

REPORT INFORMATION
  Report Type: Spontaneous
  Country: JP (occurrence: JP)
  Receive Date: 20240624
  Receipt Date: 20240812
  Transmission Date: 20241017
  Serious: Yes (Hospitalization)
  Sender: FERRING
  Company Number: JP-ferring-EVA202400895FERRINGPH

PATIENT

DRUGS (4)
  1. FOLLITROPIN DELTA [Suspect]
     Active Substance: FOLLITROPIN DELTA
     Indication: Controlled ovarian stimulation
     Route: 065
  2. MENOTROPINS [Suspect]
     Active Substance: MENOTROPINS
     Indication: Controlled ovarian stimulation
     Route: 065
  3. CLOMIPHENE CITRATE [Suspect]
     Active Substance: CLOMIPHENE CITRATE
     Indication: Controlled ovarian stimulation
     Route: 065
  4. FOLLITROPIN [Suspect]
     Active Substance: FOLLITROPIN
     Indication: Controlled ovarian stimulation
     Route: 065

REACTIONS (2)
  - Non-cardiogenic pulmonary oedema [Recovered/Resolved]
  - Ovarian hyperstimulation syndrome [Unknown]
